FAERS Safety Report 13728799 (Version 2)
Quarter: 2017Q3

REPORT INFORMATION
  Report Type: Spontaneous
  Country: US (occurrence: US)
  Receive Date: 20170707
  Receipt Date: 20170726
  Transmission Date: 20171127
  Serious: No
  Sender: FDA-Public Use
  Company Number: US-PFIZER INC-2017294338

PATIENT
  Age: 72 Year
  Sex: Female
  Weight: 55.34 kg

DRUGS (1)
  1. NICOTROL [Suspect]
     Active Substance: NICOTINE
     Indication: SMOKING CESSATION THERAPY
     Dosage: UNK, DAILY (INHALING 2 TO 3 CARTRIDGES A DAY)
     Dates: start: 20170412

REACTIONS (2)
  - Bronchitis [Recovering/Resolving]
  - Intentional product misuse [Unknown]
